FAERS Safety Report 6219304-5 (Version None)
Quarter: 2009Q2

REPORT INFORMATION
  Report Type: 
  Country: None (occurrence: None)
  Receive Date: 20090605
  Receipt Date: 20090601
  Transmission Date: 20091009
  Serious: Yes (Hospitalization)
  Sender: FDA-Public Use
  Company Number: SPV1-2009-01111

PATIENT
  Age: 24 Year
  Sex: Male
  Weight: 65 kg

DRUGS (1)
  1. FOSRENOL [Suspect]
     Indication: RENAL FAILURE
     Dosage: 1000 MG, 3X/DAY:TID BEFORE MEALS, ORAL
     Route: 048
     Dates: start: 20050101

REACTIONS (1)
  - GASTRIC INFECTION [None]
